FAERS Safety Report 22161286 (Version 1)
Quarter: 2023Q1

REPORT INFORMATION
  Report Type: Spontaneous
  Country: CN (occurrence: CN)
  Receive Date: 20230331
  Receipt Date: 20230331
  Transmission Date: 20230417
  Serious: Yes (Hospitalization, Other)
  Sender: FDA-Public Use
  Company Number: CN-ELI_LILLY_AND_COMPANY-CN202303011538

PATIENT
  Age: 80 Year
  Sex: Female
  Weight: 70 kg

DRUGS (1)
  1. TRULICITY [Suspect]
     Active Substance: DULAGLUTIDE
     Indication: Type 2 diabetes mellitus
     Dosage: 1.5 MG, WEEKLY (1/W)
     Route: 058
     Dates: start: 20220106, end: 20230316

REACTIONS (18)
  - Oedema peripheral [Unknown]
  - Deep vein thrombosis [Recovering/Resolving]
  - Urine output decreased [Not Recovered/Not Resolved]
  - Dyspnoea [Not Recovered/Not Resolved]
  - Red blood cell count increased [Unknown]
  - Haemoglobin decreased [Unknown]
  - Glucose urine present [Unknown]
  - Protein urine present [Unknown]
  - White blood cells urine positive [Unknown]
  - Urinary occult blood positive [Unknown]
  - Nitrite urine present [Unknown]
  - Gamma-glutamyltransferase increased [Unknown]
  - Protein total decreased [Unknown]
  - Blood albumin decreased [Unknown]
  - Blood glucose increased [Unknown]
  - Blood urea increased [Unknown]
  - Cystatin C increased [Unknown]
  - Blood uric acid increased [Unknown]

NARRATIVE: CASE EVENT DATE: 20230313
